FAERS Safety Report 24415598 (Version 3)
Quarter: 2025Q1

REPORT INFORMATION
  Report Type: Spontaneous
  Country: JP (occurrence: JP)
  Receive Date: 20241009
  Receipt Date: 20250106
  Transmission Date: 20250408
  Serious: Yes (Life-Threatening, Hospitalization, Other)
  Sender: BRISTOL-MYERS SQUIBB COMPANY
  Company Number: JP-ONO-2024JP020409

PATIENT
  Age: 8 Decade
  Sex: Male

DRUGS (1)
  1. OPDIVO [Suspect]
     Active Substance: NIVOLUMAB
     Indication: Squamous cell carcinoma of skin
     Route: 041
     Dates: start: 20240722, end: 20240722

REACTIONS (3)
  - Pneumonia aspiration [Recovered/Resolved]
  - Myasthenia gravis [Unknown]
  - Myocarditis [Unknown]

NARRATIVE: CASE EVENT DATE: 20240819
